FAERS Safety Report 5914441-4 (Version None)
Quarter: 2008Q4

REPORT INFORMATION
  Report Type: 
  Country: None (occurrence: None)
  Receive Date: 20081009
  Receipt Date: 20080929
  Transmission Date: 20090506
  Serious: Yes (Other)
  Sender: FDA-Public Use
  Company Number: DE-GILEAD-2008-0018447

PATIENT
  Sex: Female
  Weight: 61.6 kg

DRUGS (4)
  1. TRUVADA [Suspect]
     Indication: HIV INFECTION
     Route: 048
     Dates: start: 20071127
  2. ZIDOVUDINE [Concomitant]
     Indication: HIV INFECTION
     Dates: start: 20071127, end: 20071221
  3. PRESINOL [Concomitant]
     Indication: HYPERTENSION
     Dates: start: 20070801
  4. IRON [Concomitant]
     Indication: PREGNANCY
     Dates: start: 20070801

REACTIONS (3)
  - CERVICAL INCOMPETENCE [None]
  - PRE-ECLAMPSIA [None]
  - PREGNANCY [None]
